FAERS Safety Report 9326120 (Version 1)
Quarter: 2013Q2

REPORT INFORMATION
  Report Type: Spontaneous
  Country: US (occurrence: None)
  Receive Date: 20130603
  Receipt Date: 20130603
  Transmission Date: 20140414
  Serious: Yes (Hospitalization, Other)
  Sender: FDA-Public Use
  Company Number: None

PATIENT
  Age: 66 Year
  Sex: Female
  Weight: 64.86 kg

DRUGS (1)
  1. SYMBICORT [Suspect]
     Indication: ASTHMA
     Dosage: 1 PUFF, TWICE DAILY
     Dates: start: 20130320, end: 20130423

REACTIONS (8)
  - Muscle spasms [None]
  - Dysphagia [None]
  - Oral candidiasis [None]
  - Oesophageal candidiasis [None]
  - Gastric ulcer [None]
  - Chest pain [None]
  - Neuropathy peripheral [None]
  - Respiratory disorder [None]
